FAERS Safety Report 6172392-7 (Version None)
Quarter: 2009Q2

REPORT INFORMATION
  Report Type: 
  Country: None (occurrence: None)
  Receive Date: 20090429
  Receipt Date: 20090420
  Transmission Date: 20091009
  Serious: Yes (Other)
  Sender: FDA-Public Use
  Company Number: PHHY2009CN15065

PATIENT
  Age: 20 Year
  Sex: Male

DRUGS (3)
  1. TELBIVUDINE [Suspect]
     Dosage: 600 MG/DAY
  2. LAMIVUDINE [Concomitant]
     Dosage: 100 MG/DAY
  3. ADEFOVIR DIPIVOXIL KIT [Concomitant]
     Dosage: 10 MG/DAY

REACTIONS (2)
  - PATHOGEN RESISTANCE [None]
  - VIRAL MUTATION IDENTIFIED [None]
